FAERS Safety Report 20986551 (Version 1)
Quarter: 2022Q2

REPORT INFORMATION
  Report Type: 
  Country: US (occurrence: US)
  Receive Date: 20220621
  Receipt Date: 20220621
  Transmission Date: 20220721
  Serious: No
  Sender: FDA-Public Use
  Company Number: US-C B Fleet Co Inc-202110-US-003573

PATIENT

DRUGS (1)
  1. NIX [Suspect]
     Active Substance: PERMETHRIN
     Indication: Product used for unknown indication
     Dosage: I USED TWICE
     Route: 061

REACTIONS (2)
  - Unevaluable event [None]
  - Product used for unknown indication [None]
